FAERS Safety Report 4879688-7 (Version None)
Quarter: 2006Q1

REPORT INFORMATION
  Report Type: 
  Country: None (occurrence: None)
  Receive Date: 20060111
  Receipt Date: 20051227
  Transmission Date: 20060701
  Serious: Yes (Hospitalization)
  Sender: FDA-Public Use
  Company Number: 2005-BP-21825RO

PATIENT
  Age: 48 Year
  Sex: Female

DRUGS (3)
  1. MEFLOQUINE [Suspect]
     Indication: MALARIA PROPHYLAXIS
     Dosage: 250 MG/WEEK X 8 WEEKS (250 MG), PO
     Route: 048
  2. FLUOXETINE [Concomitant]
  3. ALPRAZOLAM [Concomitant]

REACTIONS (11)
  - AGITATION [None]
  - ANXIETY [None]
  - ASTHENIA [None]
  - DEPRESSION [None]
  - DRY MOUTH [None]
  - DYSPHORIA [None]
  - NAUSEA [None]
  - SLEEP DISORDER [None]
  - TREATMENT NONCOMPLIANCE [None]
  - TREMOR [None]
  - WEIGHT DECREASED [None]
